FAERS Safety Report 9655990 (Version 1)
Quarter: 2013Q4

REPORT INFORMATION
  Report Type: Spontaneous
  Country: US (occurrence: None)
  Receive Date: 20131029
  Receipt Date: 20131029
  Transmission Date: 20140711
  Serious: Yes (Disabling, Other)
  Sender: FDA-Public Use
  Company Number: None

PATIENT
  Age: 48 Year
  Sex: Female
  Weight: 57.15 kg

DRUGS (4)
  1. NEURONTIN [Suspect]
     Indication: NERVE INJURY
     Route: 048
     Dates: start: 20060817, end: 20130123
  2. NEURONTIN [Suspect]
     Indication: PAIN
     Route: 048
     Dates: start: 20060817, end: 20130123
  3. NEURONTIN [Suspect]
     Indication: AFFECT LABILITY
     Route: 048
     Dates: start: 20060817, end: 20130123
  4. TEGRETOL [Suspect]
     Indication: BIPOLAR DISORDER
     Dosage: AT BEDTIME
     Route: 048
     Dates: start: 1995

REACTIONS (14)
  - Palpitations [None]
  - Cerebrovascular accident [None]
  - Blindness [None]
  - Speech disorder [None]
  - Nervous system disorder [None]
  - Balance disorder [None]
  - Insomnia [None]
  - Gastric disorder [None]
  - Blood pressure abnormal [None]
  - Weight increased [None]
  - Abdominal distension [None]
  - Decreased appetite [None]
  - Thirst [None]
  - Mobility decreased [None]
